FAERS Safety Report 4833146-4 (Version None)
Quarter: 2005Q4

REPORT INFORMATION
  Report Type: 
  Country: None (occurrence: None)
  Receive Date: 20051117
  Receipt Date: 20051104
  Transmission Date: 20060501
  Serious: Yes (Other)
  Sender: FDA-Public Use
  Company Number: 2005143783

PATIENT
  Age: 77 Year
  Sex: Female

DRUGS (27)
  1. NEURONTIN [Suspect]
     Indication: NEUROPATHY PERIPHERAL
     Dates: end: 20050901
  2. LYRICA [Suspect]
     Indication: NEUROPATHY PERIPHERAL
     Dosage: 150 MG (50 MG, 3 IN 1 D), ORAL
     Route: 048
     Dates: start: 20051001, end: 20051011
  3. AMLODIPINE [Suspect]
     Indication: ILL-DEFINED DISORDER
  4. BUMEX [Concomitant]
  5. WARFARIN SODIUM [Concomitant]
  6. ALLEGRA [Concomitant]
  7. INSULIN [Concomitant]
  8. ZETIA [Concomitant]
  9. ALL OTHER THERAPEUTIC PRODUCTS (ALL OTHER THERAPEUTIC PRODUCTS) [Concomitant]
  10. COZAAR [Concomitant]
  11. NEXIUM [Concomitant]
  12. LEVOTHROID [Concomitant]
  13. IMDUR [Concomitant]
  14. ASPIRIN [Concomitant]
  15. NITRO PATCH (GLYCERYL TRINITRATE) [Concomitant]
  16. ANTIVERT ^PFIZER^ (MECLOZINE HYDROCHLORIDE) [Concomitant]
  17. HUMALOG [Concomitant]
  18. NITROQUICK (GLYCERYL TRINITRATE) [Concomitant]
  19. ZONALON (DOXEPIN HYDROCHLORIDE) [Concomitant]
  20. ADVAIR DISKUS 100/50 [Concomitant]
  21. COMBIVENT [Concomitant]
  22. TYLENOL [Concomitant]
  23. TIAZAC [Concomitant]
  24. IRON (IRON) [Concomitant]
  25. CALCIUM (CALCIUM) [Concomitant]
  26. VITAMIN B12 [Concomitant]
  27. DILTIAZEM [Concomitant]

REACTIONS (10)
  - CARDIAC FAILURE CONGESTIVE [None]
  - CONDITION AGGRAVATED [None]
  - DRUG INEFFECTIVE [None]
  - DYSPNOEA [None]
  - DYSPNOEA EXERTIONAL [None]
  - HYPERTENSION [None]
  - OEDEMA [None]
  - PULMONARY OEDEMA [None]
  - RALES [None]
  - WEIGHT INCREASED [None]
